FAERS Safety Report 23548241 (Version 1)
Quarter: 2024Q1

REPORT INFORMATION
  Report Type: Spontaneous
  Country: NL (occurrence: NL)
  Receive Date: 20240221
  Receipt Date: 20240221
  Transmission Date: 20240409
  Serious: Yes (Death, Other)
  Sender: FDA-Public Use
  Company Number: NL-ABBVIE-5368994

PATIENT
  Age: 45 Year
  Sex: Female
  Weight: 82 kg

DRUGS (4)
  1. AZACITIDINE [Suspect]
     Active Substance: AZACITIDINE
     Indication: Acute myeloid leukaemia
     Dosage: 75 MILLIGRAM/SQ. METER (DAYS 1 TO 7  )
     Route: 065
     Dates: start: 202207
  2. VENETOCLAX [Suspect]
     Active Substance: VENETOCLAX
     Indication: Acute myeloid leukaemia
     Dosage: 100 MILLIGRAM  DAY 1
     Route: 048
     Dates: start: 202207, end: 202207
  3. VENETOCLAX [Suspect]
     Active Substance: VENETOCLAX
     Dosage: 200 MILLIGRAM ( DAY 2)
     Route: 048
     Dates: start: 202207, end: 202207
  4. VENETOCLAX [Suspect]
     Active Substance: VENETOCLAX
     Dosage: 400 MILLIGRAM, ONCE A DAY ( DAYS 3 TO 28)
     Route: 048
     Dates: start: 202207

REACTIONS (6)
  - Cerebral haemorrhage [Fatal]
  - Thrombocytopenia [Fatal]
  - Transfusion related complication [Fatal]
  - Allogenic stem cell transplantation [Fatal]
  - Chemotherapy [Unknown]
  - Off label use [Not Recovered/Not Resolved]

NARRATIVE: CASE EVENT DATE: 20220101
